FAERS Safety Report 19570022 (Version 1)
Quarter: 2021Q3

REPORT INFORMATION
  Report Type: Spontaneous
  Country: BR (occurrence: BR)
  Receive Date: 20210715
  Receipt Date: 20210715
  Transmission Date: 20211014
  Serious: Yes (Hospitalization, Other)
  Sender: FDA-Public Use
  Company Number: BR-TAKEDA-2021TUS042623

PATIENT
  Age: 6 Month
  Sex: Male

DRUGS (4)
  1. ACETYLSALICYLIC ACID [Concomitant]
     Active Substance: ASPIRIN
     Indication: KAWASAKI^S DISEASE
     Dosage: 80 MILLIGRAM/KILOGRAM
  2. HUMAN NORMAL IMMUNOGLOBULIN [Suspect]
     Active Substance: HUMAN IMMUNOGLOBULIN G
     Indication: KAWASAKI^S DISEASE
     Dosage: 2 GRAM PER KILOGRAM
     Route: 042
  3. ACETYLSALICYLIC ACID [Concomitant]
     Active Substance: ASPIRIN
     Dosage: 80 MILLIGRAM/KILOGRAM
  4. ACETYLSALICYLIC ACID [Concomitant]
     Active Substance: ASPIRIN
     Dosage: 5 MILLIGRAM/KILOGRAM

REACTIONS (11)
  - Skin exfoliation [Recovered/Resolved]
  - Oedema peripheral [Recovered/Resolved]
  - Lip erythema [Recovered/Resolved]
  - C-reactive protein increased [Unknown]
  - Leukocytosis [Unknown]
  - Coronary artery aneurysm [Unknown]
  - Bacille Calmette-Guerin scar reactivation [Recovered/Resolved]
  - Conjunctival hyperaemia [Recovered/Resolved]
  - Thrombocytosis [Unknown]
  - Pyrexia [Recovered/Resolved]
  - Anaemia [Unknown]
